FAERS Safety Report 6891881-0 (Version None)
Quarter: 2010Q3

REPORT INFORMATION
  Report Type: 
  Country: None (occurrence: None)
  Receive Date: 20100731
  Receipt Date: 20071109
  Transmission Date: 20110219
  Serious: No
  Sender: FDA-Public Use
  Company Number: US-PFIZER INC-2007095573

PATIENT
  Sex: Female

DRUGS (4)
  1. GABAPENTIN [Suspect]
     Indication: BACK PAIN
     Route: 048
     Dates: start: 20070801, end: 20071108
  2. NEURONTIN [Suspect]
     Route: 048
     Dates: start: 20071108
  3. NEXIUM [Concomitant]
     Route: 048
  4. CELEBREX [Concomitant]
     Route: 048

REACTIONS (7)
  - ANXIETY [None]
  - FEELING ABNORMAL [None]
  - HYPERHIDROSIS [None]
  - SOMNOLENCE [None]
  - THINKING ABNORMAL [None]
  - TREMOR [None]
  - WITHDRAWAL SYNDROME [None]
